FAERS Safety Report 4283395-1 (Version None)
Quarter: 2004Q1

REPORT INFORMATION
  Report Type: 
  Country: None (occurrence: None)
  Receive Date: 20040115
  Receipt Date: 20030929
  Transmission Date: 20041129
  Serious: Yes (Hospitalization)
  Sender: FDA-Public Use
  Company Number: US-JNJFOC-20030901841

PATIENT
  Age: 45 Year
  Sex: Female

DRUGS (2)
  1. DOXIL [Suspect]
     Indication: OVARIAN CANCER
     Dosage: 50 MG/M2, 1 IN 4 WEEK, INTRAVENOUS
     Route: 042
     Dates: start: 20030731, end: 20030826
  2. VITAMIN B6 [Concomitant]

REACTIONS (2)
  - PALMAR-PLANTAR ERYTHRODYSAESTHESIA SYNDROME [None]
  - STOMATITIS [None]
